FAERS Safety Report 6810872-9 (Version None)
Quarter: 2010Q2

REPORT INFORMATION
  Report Type: 
  Country: None (occurrence: None)
  Receive Date: 20100630
  Receipt Date: 20100618
  Transmission Date: 20101027
  Serious: Yes (Hospitalization)
  Sender: FDA-Public Use
  Company Number: PHHY2010TW40490

PATIENT
  Sex: Female

DRUGS (1)
  1. NEORAL [Suspect]
     Indication: RENAL TRANSPLANT
     Dosage: UNK
     Route: 048
     Dates: start: 20090501

REACTIONS (5)
  - ABDOMINAL PAIN LOWER [None]
  - FEELING COLD [None]
  - MALAISE [None]
  - PYREXIA [None]
  - TENDERNESS [None]
